FAERS Safety Report 10189584 (Version 1)
Quarter: 2014Q2

REPORT INFORMATION
  Report Type: Spontaneous
  Country: US (occurrence: US)
  Receive Date: 20140522
  Receipt Date: 20140522
  Transmission Date: 20141212
  Serious: Yes (Hospitalization)
  Sender: FDA-Public Use
  Company Number: US-GLAXOSMITHKLINE-A1073482A

PATIENT
  Age: 64 Year
  Sex: Female

DRUGS (11)
  1. ADVAIR [Suspect]
     Indication: CHRONIC OBSTRUCTIVE PULMONARY DISEASE
     Dosage: 1PUFF TWICE PER DAY
     Route: 055
     Dates: start: 2001
  2. COUMADIN [Suspect]
     Indication: PRODUCT USED FOR UNKNOWN INDICATION
     Route: 065
  3. COATED ASPIRIN [Concomitant]
     Route: 065
  4. TIKOSYN [Concomitant]
     Dosage: 250MG TWICE PER DAY
     Route: 065
  5. TOPROL XL [Concomitant]
     Dosage: 50MG THREE TIMES PER DAY
     Route: 065
  6. FOLIC ACID [Concomitant]
     Dosage: 1MG PER DAY
     Route: 065
  7. LASIX [Concomitant]
     Dosage: 40MG PER DAY
     Route: 065
  8. DIOVAN [Concomitant]
     Dosage: 320MG UNKNOWN
     Route: 065
  9. SINGULAIR [Concomitant]
     Dosage: 10MG PER DAY
     Route: 065
  10. DEXILANT [Concomitant]
     Dosage: 60MG PER DAY
     Route: 065
  11. OXYGEN [Concomitant]

REACTIONS (12)
  - Atrial fibrillation [Unknown]
  - Cardiac failure congestive [Unknown]
  - Investigation [Unknown]
  - Eyelid oedema [Unknown]
  - Skin discolouration [Unknown]
  - Thrombosis [Unknown]
  - Visual impairment [Unknown]
  - Neoplasm skin [Unknown]
  - Acrochordon [Unknown]
  - Dyspnoea [Unknown]
  - Bronchitis [Unknown]
  - Drug dose omission [Unknown]
